FAERS Safety Report 19845720 (Version 1)
Quarter: 2021Q3

REPORT INFORMATION
  Report Type: Spontaneous
  Country: US (occurrence: US)
  Receive Date: 20210917
  Receipt Date: 20210917
  Transmission Date: 20211014
  Serious: Yes (Hospitalization)
  Sender: FDA-Public Use
  Company Number: None

PATIENT
  Age: 62 Year
  Sex: Female
  Weight: 78.75 kg

DRUGS (1)
  1. NIVOLUMAB [Suspect]
     Active Substance: NIVOLUMAB
     Indication: NEUROENDOCRINE CARCINOMA
     Dates: start: 20190403, end: 20210722

REACTIONS (6)
  - Abdominal pain [None]
  - Pancreatitis [None]
  - Cholelithiasis [None]
  - Euglycaemic diabetic ketoacidosis [None]
  - Bacteraemia [None]
  - Hepatic lesion [None]

NARRATIVE: CASE EVENT DATE: 20210905
